FAERS Safety Report 20768518 (Version 1)
Quarter: 2022Q2

REPORT INFORMATION
  Report Type: Spontaneous
  Country: US (occurrence: None)
  Receive Date: 20220428
  Receipt Date: 20220428
  Transmission Date: 20220721
  Serious: Yes (Hospitalization)
  Sender: FDA-Public Use
  Company Number: None

PATIENT
  Age: 19 Year
  Sex: Female

DRUGS (6)
  1. PULMOZYME [Suspect]
     Active Substance: DORNASE ALFA
  2. SMZ/TMP DS [Concomitant]
  3. SODIUM CHLOR SOL [Concomitant]
  4. TOBRAMYCIN [Concomitant]
  5. TRIKAFTA [Concomitant]
  6. URSODIOL CAP [Concomitant]

REACTIONS (1)
  - Hospitalisation [None]

NARRATIVE: CASE EVENT DATE: 20220401
